FAERS Safety Report 15514639 (Version 2)
Quarter: 2018Q4

REPORT INFORMATION
  Report Type: Report from Study
  Country: IE (occurrence: IE)
  Receive Date: 20181016
  Receipt Date: 20181220
  Transmission Date: 20190205
  Serious: Yes (Other)
  Sender: FDA-Public Use
  Company Number: IE-JNJFOC-20181021583

PATIENT
  Age: 55 Year
  Sex: Female

DRUGS (2)
  1. VITAMIN D3 CALCIUM [Concomitant]
     Active Substance: CALCIUM\CHOLECALCIFEROL
  2. TREMFYA [Suspect]
     Active Substance: GUSELKUMAB
     Indication: PSORIASIS
     Dosage: AT WEEKS 0, 4, FOLLOWED BY EVERY 8 WEEKS
     Route: 058
     Dates: start: 20180720

REACTIONS (3)
  - Kidney infection [Recovering/Resolving]
  - Sinus disorder [Recovering/Resolving]
  - Lower respiratory tract infection [Recovering/Resolving]

NARRATIVE: CASE EVENT DATE: 20180828
